FAERS Safety Report 5613926-8 (Version None)
Quarter: 2008Q1

REPORT INFORMATION
  Report Type: 
  Country: None (occurrence: None)
  Receive Date: 20080205
  Receipt Date: 20080126
  Transmission Date: 20080703
  Serious: Yes (Hospitalization, Other)
  Sender: FDA-Public Use
  Company Number: AT-ABBOTT-07P-009-0419538-00

PATIENT
  Sex: Female
  Weight: 56 kg

DRUGS (1)
  1. HUMIRA [Suspect]
     Indication: RHEUMATOID ARTHRITIS
     Route: 058
     Dates: start: 20060125, end: 20070806

REACTIONS (9)
  - ACID FAST BACILLI INFECTION [None]
  - ASCITES [None]
  - ATYPICAL MYCOBACTERIAL INFECTION [None]
  - DISSEMINATED TUBERCULOSIS [None]
  - GRANULOMA [None]
  - INFECTION [None]
  - OVARIAN CANCER [None]
  - PERITONEAL CARCINOMA [None]
  - PNEUMONIA [None]
